FAERS Safety Report 8226941-5 (Version None)
Quarter: 2012Q1

REPORT INFORMATION
  Report Type: 
  Country: None (occurrence: None)
  Receive Date: 20120322
  Receipt Date: 20120315
  Transmission Date: 20120608
  Serious: Yes (Hospitalization)
  Sender: FDA-Public Use
  Company Number: US-BAYER-201019548NA

PATIENT
  Age: 42 Year
  Sex: Female
  Weight: 59 kg

DRUGS (8)
  1. EVENING PRIMROSE OIL [Concomitant]
     Route: 048
  2. YAZ [Suspect]
     Indication: ORAL CONTRACEPTION
     Route: 048
     Dates: start: 20090707, end: 20090810
  3. IBUPROFEN (ADVIL) [Concomitant]
     Route: 048
  4. EVENING PRIMROSE OIL [Concomitant]
     Route: 048
  5. ANTIBIOTICS [Concomitant]
     Route: 065
  6. AMOXICILLIN [Concomitant]
     Dosage: UNK
     Dates: start: 20090810
  7. ONE A DAY [Concomitant]
     Indication: VITAMIN SUPPLEMENTATION
     Route: 048
     Dates: start: 19850101
  8. ONE-A-DAY [MINERALS NOS,VITAMINS NOS] [Concomitant]
     Route: 048
     Dates: start: 19850101

REACTIONS (3)
  - INTRACRANIAL VENOUS SINUS THROMBOSIS [None]
  - HAEMORRHAGIC CEREBRAL INFARCTION [None]
  - CEREBRAL HAEMORRHAGE [None]
